APPROVED DRUG PRODUCT: MEPIVACAINE HYDROCHLORIDE
Active Ingredient: MEPIVACAINE HYDROCHLORIDE
Strength: 3%
Dosage Form/Route: INJECTABLE;INJECTION
Application: A040806 | Product #001
Applicant: HOSPIRA INC
Approved: Apr 28, 2008 | RLD: No | RS: No | Type: DISCN